FAERS Safety Report 16130382 (Version 2)
Quarter: 2019Q2

REPORT INFORMATION
  Report Type: Spontaneous
  Country: FR (occurrence: FR)
  Receive Date: 20190328
  Receipt Date: 20190522
  Transmission Date: 20190711
  Serious: Yes (Hospitalization, Other)
  Sender: FDA-Public Use
  Company Number: PHHY2019FR069536

PATIENT
  Age: 54 Year
  Sex: Female

DRUGS (8)
  1. ZOLPIDEM [Concomitant]
     Active Substance: ZOLPIDEM\ZOLPIDEM TARTRATE
     Indication: INSOMNIA
     Dosage: UNK UNK, QD
     Route: 048
  2. CELESTAMINE [Concomitant]
     Active Substance: BETAMETHASONE\DEXCHLORPHENIRAMINE MALEATE
     Indication: PRODUCT USED FOR UNKNOWN INDICATION
     Dosage: 0.25 MG, UNK
     Route: 065
  3. ACLASTA [Suspect]
     Active Substance: ZOLEDRONIC ACID
     Indication: OSTEOPENIA
     Dosage: 5 MG, UNK
     Route: 042
     Dates: start: 20190315
  4. LYRICA [Concomitant]
     Active Substance: PREGABALIN
     Indication: MUSCULOSKELETAL PAIN
     Dosage: 75 OT, BID
     Route: 048
  5. DOLIPRANE [Concomitant]
     Active Substance: ACETAMINOPHEN
     Indication: PRODUCT USED FOR UNKNOWN INDICATION
     Dosage: 8 DF, QD
     Route: 065
  6. LOVENOX [Concomitant]
     Active Substance: ENOXAPARIN SODIUM
     Indication: PRODUCT USED FOR UNKNOWN INDICATION
     Dosage: 4000 IU, UNK
     Route: 065
  7. HYDROXYZINE [Concomitant]
     Active Substance: HYDROXYZINE HYDROCHLORIDE
     Indication: PRODUCT USED FOR UNKNOWN INDICATION
     Dosage: 25 MG, UNK
     Route: 065
  8. NEFOPAM [Concomitant]
     Active Substance: NEFOPAM
     Indication: PRODUCT USED FOR UNKNOWN INDICATION
     Dosage: 20 MG, UNK
     Route: 065

REACTIONS (26)
  - Blood potassium decreased [Recovered/Resolved]
  - Decreased appetite [Unknown]
  - Arthralgia [Not Recovered/Not Resolved]
  - Asthenia [Not Recovered/Not Resolved]
  - Somnolence [Recovered/Resolved]
  - Lip oedema [Unknown]
  - Systemic inflammatory response syndrome [Unknown]
  - Staphylococcus test positive [Unknown]
  - Malaise [Unknown]
  - Oral herpes [Not Recovered/Not Resolved]
  - Cardiac murmur [Unknown]
  - Peripheral swelling [Unknown]
  - Dyspepsia [Recovered/Resolved]
  - Intertrigo [Unknown]
  - Back pain [Unknown]
  - Speech disorder [Recovered/Resolved]
  - Chills [Recovered/Resolved]
  - Tachycardia [Unknown]
  - Erythema [Unknown]
  - Myalgia [Unknown]
  - Hypotension [Unknown]
  - Pyrexia [Recovered/Resolved]
  - Angioedema [Recovered/Resolved]
  - Weight decreased [Unknown]
  - Oedema peripheral [Unknown]
  - Lip oedema [Recovered/Resolved]

NARRATIVE: CASE EVENT DATE: 20190315
